FAERS Safety Report 6165187-1 (Version None)
Quarter: 2009Q2

REPORT INFORMATION
  Report Type: 
  Country: None (occurrence: None)
  Receive Date: 20090421
  Receipt Date: 20090421
  Transmission Date: 20091009
  Serious: Yes (Other)
  Sender: FDA-Public Use
  Company Number: None

PATIENT
  Age: 6 Year
  Sex: Female
  Weight: 18.1439 kg

DRUGS (2)
  1. SINGULAIR [Suspect]
     Indication: ASTHMA
     Dosage: 1 PILL ONCE DAILY PO
     Route: 048
     Dates: start: 20090201, end: 20090415
  2. SINGULAIR [Suspect]
     Indication: MULTIPLE ALLERGIES
     Dosage: 1 PILL ONCE DAILY PO
     Route: 048
     Dates: start: 20090201, end: 20090415

REACTIONS (5)
  - AFFECTIVE DISORDER [None]
  - AGGRESSION [None]
  - AGITATION [None]
  - CRYING [None]
  - INSOMNIA [None]
